FAERS Safety Report 14518817 (Version 3)
Quarter: 2018Q1

REPORT INFORMATION
  Report Type: Spontaneous
  Country: DE (occurrence: DE)
  Receive Date: 20180212
  Receipt Date: 20180306
  Transmission Date: 20180509
  Serious: Yes (Disabling)
  Sender: FDA-Public Use
  Company Number: DE-009507513-1802DEU005189

PATIENT
  Sex: Female
  Weight: 61 kg

DRUGS (2)
  1. DORZOLAMIDE HYDROCHLORIDE. [Suspect]
     Active Substance: DORZOLAMIDE HYDROCHLORIDE
     Indication: EYE OPERATION
     Dosage: UNK, OU
     Route: 047
  2. DORZOLAMIDE HYDROCHLORIDE. [Suspect]
     Active Substance: DORZOLAMIDE HYDROCHLORIDE
     Indication: EYE OPERATION
     Dosage: 3 DROPS PER DAY, OS
     Route: 047
     Dates: start: 20090212

REACTIONS (9)
  - Retinal tear [Recovered/Resolved with Sequelae]
  - Visual impairment [Recovered/Resolved with Sequelae]
  - Vitreous detachment [Unknown]
  - Dysmetropsia [Recovered/Resolved with Sequelae]
  - Vitreous opacities [Recovered/Resolved with Sequelae]
  - Head discomfort [Recovered/Resolved with Sequelae]
  - Macular fibrosis [Recovered/Resolved with Sequelae]
  - Eye disorder [Recovered/Resolved with Sequelae]
  - Vitreous detachment [Recovered/Resolved with Sequelae]

NARRATIVE: CASE EVENT DATE: 2009
